FAERS Safety Report 6453445-2 (Version None)
Quarter: 2009Q4

REPORT INFORMATION
  Report Type: 
  Country: None (occurrence: None)
  Receive Date: 20091124
  Receipt Date: 20091110
  Transmission Date: 20100525
  Serious: Yes (Death, Life-Threatening)
  Sender: FDA-Public Use
  Company Number: JP-ROCHE-656688

PATIENT
  Sex: Male
  Weight: 66 kg

DRUGS (7)
  1. PEGASYS [Suspect]
     Route: 058
     Dates: start: 20070627, end: 20090701
  2. ROHYPNOL [Concomitant]
     Route: 048
     Dates: start: 20050915, end: 20090727
  3. METHYCOBAL [Concomitant]
     Route: 030
     Dates: start: 20051031, end: 20090715
  4. URSO 250 [Concomitant]
     Route: 048
     Dates: start: 20060315, end: 20090727
  5. ACINON [Concomitant]
     Route: 048
     Dates: start: 20060721, end: 20090727
  6. PROMAC [Concomitant]
     Route: 048
     Dates: start: 20060721, end: 20090727
  7. VOLTAREN [Concomitant]
     Dosage: FORM: SUSTAINED RELEASE CAPSULE
     Route: 048
     Dates: start: 20060721, end: 20090722

REACTIONS (10)
  - DISEASE PROGRESSION [None]
  - HAEMODIALYSIS [None]
  - HAEMORRHAGIC CEREBRAL INFARCTION [None]
  - HEPATIC CIRRHOSIS [None]
  - PLATELET COUNT DECREASED [None]
  - PROTEINURIA [None]
  - RENAL DISORDER [None]
  - RENAL IMPAIRMENT [None]
  - RESPIRATORY DISORDER [None]
  - SUBDURAL HAEMATOMA [None]
